FAERS Safety Report 4870618-0 (Version None)
Quarter: 2006Q1

REPORT INFORMATION
  Report Type: 
  Country: None (occurrence: None)
  Receive Date: 20060103
  Receipt Date: 20051222
  Transmission Date: 20060701
  Serious: Yes (Hospitalization)
  Sender: FDA-Public Use
  Company Number: 2005UW19272

PATIENT
  Age: 63 Year
  Sex: Male
  Weight: 85.3 kg

DRUGS (3)
  1. TOPROL-XL [Suspect]
     Indication: MYOCARDIAL INFARCTION
     Route: 048
     Dates: start: 20050101
  2. TOPROL-XL [Suspect]
     Route: 048
     Dates: start: 20040101, end: 20050101
  3. LIPITOR [Concomitant]

REACTIONS (1)
  - PULMONARY FIBROSIS [None]
